FAERS Safety Report 8973647 (Version 2)
Quarter: 2012Q4

REPORT INFORMATION
  Report Type: 
  Country: JP (occurrence: JP)
  Receive Date: 20121219
  Receipt Date: 20121227
  Transmission Date: 20130627
  Serious: Yes (Other)
  Sender: FDA-Public Use
  Company Number: JP-JNJFOC-20121207029

PATIENT
  Age: 78 Year
  Sex: Male

DRUGS (7)
  1. REMINYL [Suspect]
     Indication: DEMENTIA
     Route: 048
     Dates: end: 20121208
  2. LASIX [Concomitant]
     Route: 048
  3. ALDACTONE A [Concomitant]
     Route: 048
  4. JZOLOFT [Concomitant]
     Route: 048
  5. BAYASPIRIN [Concomitant]
     Route: 048
  6. ARTIST [Concomitant]
     Route: 048
  7. POLAPREZINC [Concomitant]
     Route: 048

REACTIONS (1)
  - Loss of consciousness [Recovered/Resolved]
